FAERS Safety Report 24702831 (Version 1)
Quarter: 2024Q4

REPORT INFORMATION
  Report Type: Spontaneous
  Country: CA (occurrence: CA)
  Receive Date: 20241205
  Receipt Date: 20241205
  Transmission Date: 20250115
  Serious: Yes (Other)
  Sender: MYLAN
  Company Number: CA-MYLANLABS-2024M1108856

PATIENT

DRUGS (22)
  1. GABAPENTIN [Suspect]
     Active Substance: GABAPENTIN
     Indication: Hyperemesis gravidarum
     Dosage: 100 MILLIGRAM, QD (1 EVERY 1 DAYS)
     Route: 065
  2. GABAPENTIN [Suspect]
     Active Substance: GABAPENTIN
     Indication: Vomiting
  3. BETAMETHASONE [Suspect]
     Active Substance: BETAMETHASONE
     Indication: Maternal therapy to enhance foetal lung maturity
     Dosage: UNK
     Route: 065
  4. BETAMETHASONE [Suspect]
     Active Substance: BETAMETHASONE
     Indication: Pre-eclampsia
  5. FUROSEMIDE [Suspect]
     Active Substance: FUROSEMIDE
     Indication: Pulmonary oedema
     Dosage: 10 MILLIGRAM, BID (2 EVERY 1 DAYS)
     Route: 065
  6. FUROSEMIDE [Suspect]
     Active Substance: FUROSEMIDE
     Indication: Pulmonary hypertension
  7. HEPARIN [Suspect]
     Active Substance: HEPARIN SODIUM
     Indication: Thrombosis prophylaxis
     Dosage: 5000 INTERNATIONAL UNIT BID (2 EVERY 1 DAYS)
     Route: 065
  8. LABETALOL [Suspect]
     Active Substance: LABETALOL
     Indication: Blood pressure management
     Dosage: UNK
     Route: 065
  9. LABETALOL [Suspect]
     Active Substance: LABETALOL
     Indication: Pulmonary hypertension
  10. LABETALOL [Suspect]
     Active Substance: LABETALOL
     Indication: Blood pressure abnormal
  11. METOCLOPRAMIDE [Suspect]
     Active Substance: METOCLOPRAMIDE
     Indication: Hyperemesis gravidarum
     Dosage: UNK
     Route: 065
  12. MIRTAZAPINE [Suspect]
     Active Substance: MIRTAZAPINE
     Indication: Hyperemesis gravidarum
     Dosage: 15 MILLIGRAM, QD (1 EVERY 1 DAYS)
     Route: 065
  13. MIRTAZAPINE [Suspect]
     Active Substance: MIRTAZAPINE
     Indication: Vomiting
  14. NIFEDIPINE [Suspect]
     Active Substance: NIFEDIPINE
     Indication: Blood pressure management
     Dosage: 30 MILLIGRAM, QD (1 EVERY 1 DAYS)
     Route: 065
  15. NIFEDIPINE [Suspect]
     Active Substance: NIFEDIPINE
     Indication: Pulmonary hypertension
  16. NIFEDIPINE [Suspect]
     Active Substance: NIFEDIPINE
     Indication: Blood pressure abnormal
  17. ONDANSETRON [Suspect]
     Active Substance: ONDANSETRON
     Indication: Hyperemesis gravidarum
     Dosage: UNK
     Route: 065
  18. ASPIRIN [Suspect]
     Active Substance: ASPIRIN
     Indication: Prophylaxis
     Dosage: 162 MILLIGRAM, QD (1 EVERY 1 DAY)
     Route: 065
  19. ASPIRIN [Suspect]
     Active Substance: ASPIRIN
     Indication: Pre-eclampsia
  20. INSULIN NOS [Suspect]
     Active Substance: INSULIN NOS
     Indication: Type 1 diabetes mellitus
     Dosage: UNK
     Route: 065
  21. NIFEDIPINE [Suspect]
     Active Substance: NIFEDIPINE
     Indication: Blood pressure increased
     Dosage: 30 MILLIGRAM, QD (1 EVERY 1 DAYS)
     Route: 065
  22. OXYTOCIN [Suspect]
     Active Substance: OXYTOCIN
     Indication: Prophylaxis
     Dosage: UNK
     Route: 065

REACTIONS (2)
  - Premature delivery [Unknown]
  - Foetal exposure during pregnancy [Recovered/Resolved]
